FAERS Safety Report 23687832 (Version 1)
Quarter: 2024Q1

REPORT INFORMATION
  Report Type: Spontaneous
  Country: US (occurrence: None)
  Receive Date: 20240329
  Receipt Date: 20240329
  Transmission Date: 20240410
  Serious: Yes (Other)
  Sender: FDA-Public Use
  Company Number: None

PATIENT
  Age: 51 Year
  Sex: Female
  Weight: 49.5 kg

DRUGS (1)
  1. HEPARIN SODIUM, PORCINE [Suspect]
     Active Substance: HEPARIN SODIUM
     Indication: Coagulopathy
     Dosage: OTHER FREQUENCY : EVERY TREATMENT;?
     Route: 040
     Dates: start: 20240307, end: 20240322

REACTIONS (1)
  - Drug hypersensitivity [None]

NARRATIVE: CASE EVENT DATE: 20240322
